FAERS Safety Report 4821283-X (Version None)
Quarter: 2005Q4

REPORT INFORMATION
  Report Type: 
  Country: None (occurrence: None)
  Receive Date: 20051107
  Receipt Date: 20051026
  Transmission Date: 20060501
  Serious: Yes (Other)
  Sender: FDA-Public Use
  Company Number: PHBS2005SE15897

PATIENT
  Sex: Female

DRUGS (2)
  1. TEGRETOL [Suspect]
     Dosage: 200 MG, QID
     Route: 048
  2. ERGENYL [Concomitant]
     Dosage: 500 MG, TID
     Route: 065

REACTIONS (2)
  - ARTHRITIS [None]
  - OSTEOPOROSIS [None]
